FAERS Safety Report 4620520-4 (Version None)
Quarter: 2005Q1

REPORT INFORMATION
  Report Type: 
  Country: None (occurrence: None)
  Receive Date: 20050328
  Receipt Date: 20050124
  Transmission Date: 20050727
  Serious: Yes (Hospitalization, Other)
  Sender: FDA-Public Use
  Company Number: US-GLAXOSMITHKLINE-A0542446A

PATIENT
  Age: 26 Year
  Sex: Female
  Weight: 63.6 kg

DRUGS (2)
  1. LAMICTAL [Suspect]
     Indication: DRUG USE FOR UNKNOWN INDICATION
     Route: 048
     Dates: end: 20050101
  2. DILANTIN [Concomitant]
     Route: 048

REACTIONS (3)
  - HENOCH-SCHONLEIN PURPURA [None]
  - RASH [None]
  - VASCULITIS [None]
